FAERS Safety Report 6126113-4 (Version None)
Quarter: 2009Q1

REPORT INFORMATION
  Report Type: 
  Country: None (occurrence: None)
  Receive Date: 20090320
  Receipt Date: 20090313
  Transmission Date: 20090719
  Serious: Yes (Hospitalization)
  Sender: FDA-Public Use
  Company Number: A0725143A

PATIENT
  Age: 58 Year
  Sex: Female
  Weight: 108.2 kg

DRUGS (11)
  1. AVANDIA [Suspect]
     Dosage: 4MG PER DAY
     Route: 065
     Dates: end: 20070827
  2. ZETIA [Concomitant]
  3. NOVOLOG [Concomitant]
  4. GLIPIZIDE [Concomitant]
  5. ACIPHEX [Concomitant]
  6. METFORMIN HCL [Concomitant]
  7. LISINOPRIL [Concomitant]
  8. EZETIMIBE [Concomitant]
  9. NIFEDIPINE [Concomitant]
  10. GLIPIZIDE [Concomitant]
  11. PRAVACHOL [Concomitant]

REACTIONS (3)
  - HEART INJURY [None]
  - MYOCARDIAL INFARCTION [None]
  - MYOCARDIAL ISCHAEMIA [None]
